FAERS Safety Report 19223118 (Version 1)
Quarter: 2021Q2

REPORT INFORMATION
  Report Type: Spontaneous
  Country: US (occurrence: US)
  Receive Date: 20210506
  Receipt Date: 20210506
  Transmission Date: 20210717
  Serious: Yes (Hospitalization, Other)
  Sender: FDA-Public Use
  Company Number: None

PATIENT
  Age: 92 Year
  Sex: Female
  Weight: 58.5 kg

DRUGS (1)
  1. ERTAPENEM 1GM IN 100ML 0.9% NACL MB+ [Suspect]
     Active Substance: ERTAPENEM
     Indication: URINARY TRACT INFECTION
     Route: 042
     Dates: start: 20210416, end: 20210427

REACTIONS (2)
  - Hallucination [None]
  - Delirium [None]

NARRATIVE: CASE EVENT DATE: 20210428
